FAERS Safety Report 12679577 (Version 8)
Quarter: 2017Q1

REPORT INFORMATION
  Report Type: Spontaneous
  Country: US (occurrence: US)
  Receive Date: 20160824
  Receipt Date: 20170109
  Transmission Date: 20170428
  Serious: Yes (Hospitalization)
  Sender: FDA-Public Use
  Company Number: US-PFIZER INC-2016389408

PATIENT
  Age: 86 Year
  Sex: Female
  Weight: 63 kg

DRUGS (12)
  1. PREMARIN [Suspect]
     Active Substance: ESTROGENS, CONJUGATED
     Indication: NIGHT SWEATS
     Dosage: 1.25 MG, 1X/DAY
     Route: 048
  2. PREMARIN [Suspect]
     Active Substance: ESTROGENS, CONJUGATED
     Indication: FATIGUE
     Dosage: 0.312 MG, 1X/DAY (1/4 OF TABLET EVERY NIGHT)
     Route: 048
  3. PREMARIN [Suspect]
     Active Substance: ESTROGENS, CONJUGATED
     Indication: NAUSEA
     Dosage: BIT THE TABLET IN TWO OR THREE, ONLY TOOK 1/4 BITE OFF PART OF PILL
     Route: 048
  4. PREMARIN [Suspect]
     Active Substance: ESTROGENS, CONJUGATED
     Indication: SCIATICA
     Dosage: UNK
     Route: 048
  5. ATENOLOL AND CHLORTHALIDONE [Concomitant]
     Active Substance: ATENOLOL\CHLORTHALIDONE
     Indication: HYPERTENSION
     Dosage: 25/50 (UNKNOWN UNITS), 1X/DAY
     Dates: start: 2000
  6. PREMARIN [Suspect]
     Active Substance: ESTROGENS, CONJUGATED
     Dosage: 0.312 MG (TAKE 1/2 OF THE 0.625 MG TABLETS), UNK
     Route: 048
  7. PREMARIN [Suspect]
     Active Substance: ESTROGENS, CONJUGATED
     Dosage: 0.625 MG, UNK
     Route: 048
  8. PREMARIN [Suspect]
     Active Substance: ESTROGENS, CONJUGATED
     Indication: MENOPAUSAL SYMPTOMS
     Dosage: 1.25 MG, 1X/DAY
     Route: 048
     Dates: start: 1981
  9. ASPIRIN. [Concomitant]
     Active Substance: ASPIRIN
     Indication: CARDIAC DISORDER
     Dosage: ONE REGULAR, SOMETIMES TAKES TWO
     Dates: start: 2000
  10. PREMARIN [Suspect]
     Active Substance: ESTROGENS, CONJUGATED
     Dosage: UNK
     Route: 048
  11. PREMARIN [Suspect]
     Active Substance: ESTROGENS, CONJUGATED
     Dosage: 1.25 MG, UNK
     Route: 048
     Dates: start: 20160916
  12. ATENOLOL AND CHLORTHALIDONE [Concomitant]
     Active Substance: ATENOLOL\CHLORTHALIDONE
     Dosage: 50-25 MG, 1X/DAY

REACTIONS (4)
  - Drug ineffective [Recovered/Resolved]
  - Wrong patient received medication [Recovered/Resolved]
  - Intentional product misuse [Recovered/Resolved]
  - Product quality issue [Recovered/Resolved]

NARRATIVE: CASE EVENT DATE: 20160809
